FAERS Safety Report 19955138 (Version 1)
Quarter: 2021Q4

REPORT INFORMATION
  Report Type: Spontaneous
  Country: CN (occurrence: CN)
  Receive Date: 20211014
  Receipt Date: 20211014
  Transmission Date: 20220304
  Serious: Yes (Other)
  Sender: FDA-Public Use
  Company Number: CN-PFIZER INC-202101302807

PATIENT
  Age: 6 Year
  Sex: Male
  Weight: 27 kg

DRUGS (2)
  1. PIPERACILLIN SODIUM\TAZOBACTAM SODIUM [Suspect]
     Active Substance: PIPERACILLIN SODIUM\TAZOBACTAM SODIUM
     Indication: Headache
     Dosage: 0.67 G, 3X/DAY
     Route: 041
     Dates: start: 20210913, end: 20210919
  2. PIPERACILLIN SODIUM\TAZOBACTAM SODIUM [Suspect]
     Active Substance: PIPERACILLIN SODIUM\TAZOBACTAM SODIUM
     Indication: Anti-infective therapy

REACTIONS (4)
  - Rash [Recovering/Resolving]
  - Rash erythematous [Recovering/Resolving]
  - Pruritus [Unknown]
  - Drug eruption [Unknown]

NARRATIVE: CASE EVENT DATE: 20210915
